FAERS Safety Report 4354166-2 (Version None)
Quarter: 2004Q2

REPORT INFORMATION
  Report Type: 
  Country: None (occurrence: None)
  Receive Date: 20040503
  Receipt Date: 20040422
  Transmission Date: 20050107
  Serious: Yes (Other)
  Sender: FDA-Public Use
  Company Number: GBWYE721926APR04

PATIENT
  Age: 29 Year
  Sex: Female

DRUGS (7)
  1. EFFEXOR [Suspect]
     Dosage: 150 MG 4X PER 1 DAY ORAL
     Route: 048
  2. CLOZAPINE [Suspect]
     Indication: SCHIZOPHRENIA
     Dosage: 275MG ORAL; SEE IMAGE
     Route: 048
     Dates: start: 20000425
  3. VALPROATE SODIUM [Suspect]
     Dosage: 500 MG 2X PER 1 DAY
  4. DESMOPRESSIN [Concomitant]
  5. METFORMIN HCL [Concomitant]
  6. GLICLAZIDE [Concomitant]
  7. METHYLCELLULOSE [Concomitant]

REACTIONS (5)
  - DIABETES MELLITUS INADEQUATE CONTROL [None]
  - ELECTROCARDIOGRAM QT PROLONGED [None]
  - HEART RATE INCREASED [None]
  - PAIN [None]
  - PHARYNGOLARYNGEAL PAIN [None]
